FAERS Safety Report 23135241 (Version 1)
Quarter: 2023Q4

REPORT INFORMATION
  Report Type: Spontaneous
  Country: DE (occurrence: None)
  Receive Date: 20231101
  Receipt Date: 20231101
  Transmission Date: 20240109
  Serious: Yes (Other)
  Sender: FDA-Public Use
  Company Number: 2023A246243

PATIENT
  Age: 45 Year
  Sex: Male

DRUGS (11)
  1. DAPAGLIFLOZIN [Suspect]
     Active Substance: DAPAGLIFLOZIN
     Route: 048
  2. APIXABAN [Concomitant]
     Active Substance: APIXABAN
  3. CLOPIDOGREL [Concomitant]
     Active Substance: CLOPIDOGREL BISULFATE
  4. RAMIPRIL [Concomitant]
     Active Substance: RAMIPRIL
  5. METOPROLOL [Concomitant]
     Active Substance: METOPROLOL
  6. TORSEMIDE [Concomitant]
     Active Substance: TORSEMIDE
  7. ATORVASTATIN [Concomitant]
     Active Substance: ATORVASTATIN
  8. PRASUGREL [Concomitant]
     Active Substance: PRASUGREL
  9. EPLERENONE [Concomitant]
     Active Substance: EPLERENONE
  10. ASPIRIN [Concomitant]
     Active Substance: ASPIRIN
  11. EZETIMIBE [Concomitant]
     Active Substance: EZETIMIBE

REACTIONS (3)
  - Ejection fraction decreased [Unknown]
  - Cardiac ventricular scarring [Unknown]
  - Bundle branch block left [Unknown]
